FAERS Safety Report 15460209 (Version 1)
Quarter: 2018Q4

REPORT INFORMATION
  Report Type: Spontaneous
  Country: AU (occurrence: AU)
  Receive Date: 20181003
  Receipt Date: 20181003
  Transmission Date: 20190204
  Serious: Yes (Other)
  Sender: FDA-Public Use
  Company Number: AU-009507513-1809AUS012896

PATIENT
  Age: 70 Year
  Sex: Male

DRUGS (1)
  1. ONCOTICE [Suspect]
     Active Substance: BACILLUS CALMETTE-GUERIN SUBSTRAIN TICE LIVE ANTIGEN
     Route: 043

REACTIONS (2)
  - Disseminated Bacillus Calmette-Guerin infection [Unknown]
  - Empyema [Unknown]

NARRATIVE: CASE EVENT DATE: 20171001
